FAERS Safety Report 7117219-1 (Version None)
Quarter: 2010Q4

REPORT INFORMATION
  Report Type: 
  Country: None (occurrence: None)
  Receive Date: 20101122
  Receipt Date: 20101118
  Transmission Date: 20110411
  Serious: Yes (Hospitalization)
  Sender: FDA-Public Use
  Company Number: US-CEPHALON-2010005774

PATIENT
  Sex: Male
  Weight: 94 kg

DRUGS (14)
  1. TREANDA [Suspect]
     Indication: DIFFUSE LARGE B-CELL LYMPHOMA
     Route: 042
     Dates: start: 20101011, end: 20101012
  2. RITUXAN [Suspect]
     Indication: DIFFUSE LARGE B-CELL LYMPHOMA
     Route: 042
     Dates: start: 20101011, end: 20101011
  3. ANZEMET [Concomitant]
     Dates: start: 20100510, end: 20101012
  4. DEXAMETHASONE SODIUM PHOSPHATE [Concomitant]
     Dates: start: 20080715, end: 20101012
  5. PROTONIX [Concomitant]
     Dates: start: 20100520
  6. ASCORBIC ACID [Concomitant]
  7. AVODART [Concomitant]
  8. DIGOXIN [Concomitant]
  9. GEMFIBROZIL [Concomitant]
  10. BENADRYL [Concomitant]
     Dates: start: 20080715, end: 20101011
  11. LORAZEPAM [Concomitant]
     Dates: start: 20101011, end: 20101011
  12. NEULASTA [Concomitant]
     Dates: start: 20080624, end: 20101019
  13. FERROUS SULFATE [Concomitant]
     Dates: end: 20101002
  14. PROCHLORPERAZINE MALEATE [Concomitant]
     Dates: start: 20101019

REACTIONS (3)
  - DIZZINESS [None]
  - PNEUMONITIS [None]
  - PYREXIA [None]
